FAERS Safety Report 14003496 (Version 1)
Quarter: 2017Q3

REPORT INFORMATION
  Report Type: Spontaneous
  Country: JP (occurrence: JP)
  Receive Date: 20170922
  Receipt Date: 20170922
  Transmission Date: 20171128
  Serious: No
  Sender: FDA-Public Use
  Company Number: JP-LUPIN PHARMACEUTICALS INC.-2017-04433

PATIENT
  Age: 6 Decade
  Sex: Female

DRUGS (4)
  1. VORICONAZOLE. [Suspect]
     Active Substance: VORICONAZOLE
     Indication: EMBOLISM
     Dosage: 300 MG, SINGLE
     Route: 042
  2. TACROLIMUS. [Interacting]
     Active Substance: TACROLIMUS
     Indication: LUPUS NEPHRITIS
     Dosage: 2 MG, UNK
     Route: 065
  3. PREDNISOLONE. [Interacting]
     Active Substance: PREDNISOLONE
     Indication: LUPUS NEPHRITIS
     Dosage: 35 MG, UNK
     Route: 065
  4. VORICONAZOLE. [Interacting]
     Active Substance: VORICONAZOLE
     Indication: ASPERGILLUS INFECTION
     Dosage: UNK, UNK
     Route: 042

REACTIONS (3)
  - Drug interaction [Unknown]
  - No adverse event [Unknown]
  - Drug level increased [Unknown]
